FAERS Safety Report 8254999-6 (Version None)
Quarter: 2012Q2

REPORT INFORMATION
  Report Type: 
  Country: None (occurrence: None)
  Receive Date: 20120403
  Receipt Date: 20120328
  Transmission Date: 20120825
  Serious: Yes (Other)
  Sender: FDA-Public Use
  Company Number: US-AMGEN-USASP2012019948

PATIENT
  Age: 49 Year
  Sex: Female
  Weight: 57.143 kg

DRUGS (3)
  1. HUMIRA [Concomitant]
     Dosage: UNK
     Dates: start: 20080701
  2. ENBREL [Suspect]
     Indication: RHEUMATOID ARTHRITIS
     Dosage: 25 MG, 2 TIMES/WK
     Route: 058
     Dates: start: 20070301, end: 20080601
  3. METHOTREXATE [Concomitant]
     Dosage: UNK
     Dates: start: 20060501

REACTIONS (1)
  - BREAST CANCER STAGE I [None]
